FAERS Safety Report 5132394-6 (Version None)
Quarter: 2006Q4

REPORT INFORMATION
  Report Type: 
  Country: None (occurrence: None)
  Receive Date: 20061016
  Receipt Date: 20061011
  Transmission Date: 20070319
  Serious: Yes (Hospitalization)
  Sender: FDA-Public Use
  Company Number: CTP20060025

PATIENT
  Age: 77 Year

DRUGS (7)
  1. CITALOPRAM [Suspect]
     Indication: DEPRESSIVE SYMPTOM
     Dosage: 10 MG DAILY PO
     Route: 048
  2. DIGOXIN [Concomitant]
  3. ENALAPRIL MALEATE [Concomitant]
  4. SIMVASTATIN [Concomitant]
  5. PENMIX INSULIN [Concomitant]
  6. ASPIRIN [Concomitant]
  7. CEFUROXIME [Concomitant]

REACTIONS (11)
  - CEREBRAL ATROPHY [None]
  - CEREBRAL INFARCTION [None]
  - CONDITION AGGRAVATED [None]
  - DELIRIUM [None]
  - DEPRESSED LEVEL OF CONSCIOUSNESS [None]
  - DRUG INEFFECTIVE [None]
  - EXTRAPYRAMIDAL DISORDER [None]
  - GENERAL PHYSICAL HEALTH DETERIORATION [None]
  - IMPAIRED SELF-CARE [None]
  - LIVER FUNCTION TEST ABNORMAL [None]
  - NEUROTOXICITY [None]
